FAERS Safety Report 25450295 (Version 1)
Quarter: 2025Q2

REPORT INFORMATION
  Report Type: Spontaneous
  Country: NL (occurrence: NL)
  Receive Date: 20250618
  Receipt Date: 20250618
  Transmission Date: 20250717
  Serious: Yes (Hospitalization)
  Sender: MYLAN
  Company Number: NL-MYLANLABS-2025M1049579

PATIENT
  Age: 5 Decade
  Sex: Female

DRUGS (60)
  1. TRIAMCINOLONE [Suspect]
     Active Substance: TRIAMCINOLONE
     Indication: Impetigo herpetiformis
  2. TRIAMCINOLONE [Suspect]
     Active Substance: TRIAMCINOLONE
     Route: 061
  3. TRIAMCINOLONE [Suspect]
     Active Substance: TRIAMCINOLONE
     Route: 061
  4. TRIAMCINOLONE [Suspect]
     Active Substance: TRIAMCINOLONE
  5. PREDNISONE [Suspect]
     Active Substance: PREDNISONE
     Indication: Impetigo herpetiformis
     Dosage: 30 MILLIGRAM, QD
     Route: 048
  6. PREDNISONE [Suspect]
     Active Substance: PREDNISONE
     Dosage: 30 MILLIGRAM, QD
  7. PREDNISONE [Suspect]
     Active Substance: PREDNISONE
     Dosage: 30 MILLIGRAM, QD
  8. PREDNISONE [Suspect]
     Active Substance: PREDNISONE
     Dosage: 30 MILLIGRAM, QD
     Route: 048
  9. PREDNISONE [Suspect]
     Active Substance: PREDNISONE
     Dosage: 60 MILLIGRAM, QD
     Route: 048
  10. PREDNISONE [Suspect]
     Active Substance: PREDNISONE
     Dosage: 60 MILLIGRAM, QD
  11. PREDNISONE [Suspect]
     Active Substance: PREDNISONE
     Dosage: 60 MILLIGRAM, QD
  12. PREDNISONE [Suspect]
     Active Substance: PREDNISONE
     Dosage: 60 MILLIGRAM, QD
     Route: 048
  13. PREDNISONE [Suspect]
     Active Substance: PREDNISONE
     Dosage: 20 MILLIGRAM, BID
  14. PREDNISONE [Suspect]
     Active Substance: PREDNISONE
     Dosage: 20 MILLIGRAM, BID
  15. PREDNISONE [Suspect]
     Active Substance: PREDNISONE
     Dosage: 20 MILLIGRAM, BID
     Route: 048
  16. PREDNISONE [Suspect]
     Active Substance: PREDNISONE
     Dosage: 20 MILLIGRAM, BID
     Route: 048
  17. PREDNISONE [Suspect]
     Active Substance: PREDNISONE
  18. PREDNISONE [Suspect]
     Active Substance: PREDNISONE
  19. PREDNISONE [Suspect]
     Active Substance: PREDNISONE
     Route: 065
  20. PREDNISONE [Suspect]
     Active Substance: PREDNISONE
     Route: 065
  21. MORPHINE [Suspect]
     Active Substance: MORPHINE
     Indication: Pain
  22. MORPHINE [Suspect]
     Active Substance: MORPHINE
     Route: 065
  23. MORPHINE [Suspect]
     Active Substance: MORPHINE
     Route: 065
  24. MORPHINE [Suspect]
     Active Substance: MORPHINE
  25. URSODIOL [Suspect]
     Active Substance: URSODIOL
     Indication: Cholestasis
     Dosage: 300 MILLIGRAM, TID (THREE TIMES DAILY)
  26. URSODIOL [Suspect]
     Active Substance: URSODIOL
     Dosage: 300 MILLIGRAM, TID (THREE TIMES DAILY)
     Route: 065
  27. URSODIOL [Suspect]
     Active Substance: URSODIOL
     Dosage: 300 MILLIGRAM, TID (THREE TIMES DAILY)
     Route: 065
  28. URSODIOL [Suspect]
     Active Substance: URSODIOL
     Dosage: 300 MILLIGRAM, TID (THREE TIMES DAILY)
  29. CLOBETASOL [Suspect]
     Active Substance: CLOBETASOL
     Indication: Impetigo herpetiformis
  30. CLOBETASOL [Suspect]
     Active Substance: CLOBETASOL
     Route: 065
  31. CLOBETASOL [Suspect]
     Active Substance: CLOBETASOL
     Route: 065
  32. CLOBETASOL [Suspect]
     Active Substance: CLOBETASOL
  33. COSMETICS [Suspect]
     Active Substance: COSMETICS
     Indication: Impetigo herpetiformis
  34. COSMETICS [Suspect]
     Active Substance: COSMETICS
     Route: 065
  35. COSMETICS [Suspect]
     Active Substance: COSMETICS
     Route: 065
  36. COSMETICS [Suspect]
     Active Substance: COSMETICS
  37. CYCLOSPORINE [Suspect]
     Active Substance: CYCLOSPORINE
     Indication: Impetigo herpetiformis
     Dosage: 100 MILLIGRAM, BID
  38. CYCLOSPORINE [Suspect]
     Active Substance: CYCLOSPORINE
     Dosage: 100 MILLIGRAM, BID
     Route: 065
  39. CYCLOSPORINE [Suspect]
     Active Substance: CYCLOSPORINE
     Dosage: 100 MILLIGRAM, BID
     Route: 065
  40. CYCLOSPORINE [Suspect]
     Active Substance: CYCLOSPORINE
     Dosage: 100 MILLIGRAM, BID
  41. CERTOLIZUMAB PEGOL [Suspect]
     Active Substance: CERTOLIZUMAB PEGOL
     Indication: Impetigo herpetiformis
     Dosage: 200 MILLIGRAM, BIWEEKLY
  42. CERTOLIZUMAB PEGOL [Suspect]
     Active Substance: CERTOLIZUMAB PEGOL
     Dosage: 200 MILLIGRAM, BIWEEKLY
     Route: 065
  43. CERTOLIZUMAB PEGOL [Suspect]
     Active Substance: CERTOLIZUMAB PEGOL
     Dosage: 200 MILLIGRAM, BIWEEKLY
     Route: 065
  44. CERTOLIZUMAB PEGOL [Suspect]
     Active Substance: CERTOLIZUMAB PEGOL
     Dosage: 200 MILLIGRAM, BIWEEKLY
  45. COTRIMOXAZOLE [Suspect]
     Active Substance: SULFAMETHOXAZOLE\TRIMETHOPRIM
     Indication: Antibiotic prophylaxis
  46. COTRIMOXAZOLE [Suspect]
     Active Substance: SULFAMETHOXAZOLE\TRIMETHOPRIM
     Route: 065
  47. COTRIMOXAZOLE [Suspect]
     Active Substance: SULFAMETHOXAZOLE\TRIMETHOPRIM
     Route: 065
  48. COTRIMOXAZOLE [Suspect]
     Active Substance: SULFAMETHOXAZOLE\TRIMETHOPRIM
  49. FUSIDIC ACID [Suspect]
     Active Substance: FUSIDIC ACID
     Indication: Impetigo herpetiformis
  50. FUSIDIC ACID [Suspect]
     Active Substance: FUSIDIC ACID
     Route: 065
  51. FUSIDIC ACID [Suspect]
     Active Substance: FUSIDIC ACID
     Route: 065
  52. FUSIDIC ACID [Suspect]
     Active Substance: FUSIDIC ACID
  53. VASELINE PURE [Suspect]
     Active Substance: PETROLATUM
     Indication: Impetigo herpetiformis
  54. VASELINE PURE [Suspect]
     Active Substance: PETROLATUM
     Route: 065
  55. VASELINE PURE [Suspect]
     Active Substance: PETROLATUM
     Route: 065
  56. VASELINE PURE [Suspect]
     Active Substance: PETROLATUM
  57. PARAFFIN [Suspect]
     Active Substance: PARAFFIN
     Indication: Impetigo herpetiformis
  58. PARAFFIN [Suspect]
     Active Substance: PARAFFIN
     Route: 065
  59. PARAFFIN [Suspect]
     Active Substance: PARAFFIN
     Route: 065
  60. PARAFFIN [Suspect]
     Active Substance: PARAFFIN

REACTIONS (3)
  - Drug ineffective [Unknown]
  - Maternal exposure during pregnancy [Recovered/Resolved]
  - Normal newborn [Recovered/Resolved]
